FAERS Safety Report 26145050 (Version 1)
Quarter: 2025Q4

REPORT INFORMATION
  Report Type: Spontaneous
  Country: US (occurrence: US)
  Receive Date: 20251211
  Receipt Date: 20251211
  Transmission Date: 20260117
  Serious: No
  Sender: ROCHE
  Company Number: US-ROCHE-10000453277

PATIENT
  Sex: Female

DRUGS (4)
  1. ACTEMRA [Suspect]
     Active Substance: TOCILIZUMAB
     Indication: Systemic sclerosis pulmonary
     Route: 058
     Dates: start: 202503
  2. ACTEMRA [Suspect]
     Active Substance: TOCILIZUMAB
  3. YUTREPIA [Concomitant]
     Active Substance: TREPROSTINIL SODIUM
  4. TADALAFIL [Concomitant]
     Active Substance: TADALAFIL

REACTIONS (4)
  - Nasal congestion [Unknown]
  - Headache [Unknown]
  - Flushing [Unknown]
  - Hypotension [Unknown]
